FAERS Safety Report 5179083-X (Version None)
Quarter: 2006Q4

REPORT INFORMATION
  Report Type: 
  Country: None (occurrence: None)
  Receive Date: 20061219
  Receipt Date: 20061207
  Transmission Date: 20070319
  Serious: Yes (Hospitalization)
  Sender: FDA-Public Use
  Company Number: US-BAYER-200616210GDS

PATIENT
  Age: 52 Year
  Sex: Female
  Weight: 52 kg

DRUGS (1)
  1. 30% LIDOCAINE GEL [Suspect]
     Indication: DRUG USE FOR UNKNOWN INDICATION
     Route: 061

REACTIONS (9)
  - AGITATION [None]
  - ANXIETY [None]
  - BLOOD PRESSURE INCREASED [None]
  - BODY MASS INDEX DECREASED [None]
  - DIZZINESS [None]
  - DRUG TOXICITY [None]
  - NAUSEA [None]
  - PALPITATIONS [None]
  - PARAESTHESIA ORAL [None]
